FAERS Safety Report 20935140 (Version 1)
Quarter: 2022Q2

REPORT INFORMATION
  Report Type: Spontaneous
  Country: US (occurrence: US)
  Receive Date: 20220608
  Receipt Date: 20220608
  Transmission Date: 20220721
  Serious: No
  Sender: FDA-Public Use
  Company Number: US-BAXTER-2022BAX011912

PATIENT
  Sex: Male

DRUGS (1)
  1. CEFAZOLIN [Suspect]
     Active Substance: CEFAZOLIN
     Indication: Surgery
     Dosage: UNK
     Route: 042
     Dates: start: 202109

REACTIONS (2)
  - Dermatitis allergic [Unknown]
  - Pruritus allergic [Unknown]
